FAERS Safety Report 8060497-5 (Version None)
Quarter: 2012Q1

REPORT INFORMATION
  Report Type: 
  Country: None (occurrence: None)
  Receive Date: 20120120
  Receipt Date: 20120118
  Transmission Date: 20120608
  Serious: Yes (Death)
  Sender: FDA-Public Use
  Company Number: ES-B.I. PHARMACEUTICALS,INC./RIDGEFIELD-2012-ES-00022ES

PATIENT
  Age: 52 Year
  Sex: Male

DRUGS (1)
  1. PRADAXA [Suspect]
     Indication: ATRIAL FIBRILLATION
     Dosage: 150 MG
     Route: 048
     Dates: start: 20110801, end: 20111226

REACTIONS (10)
  - CONSTIPATION [None]
  - HAEMORRHAGE [None]
  - URETHRAL HAEMORRHAGE [None]
  - RECTAL HAEMORRHAGE [None]
  - ABDOMINAL PAIN [None]
  - COAGULOPATHY [None]
  - NAUSEA [None]
  - MOUTH HAEMORRHAGE [None]
  - HYPOVOLAEMIC SHOCK [None]
  - VOMITING [None]
